FAERS Safety Report 22123506 (Version 1)
Quarter: 2023Q1

REPORT INFORMATION
  Report Type: Spontaneous
  Country: PL (occurrence: PL)
  Receive Date: 20230322
  Receipt Date: 20230322
  Transmission Date: 20230417
  Serious: Yes (Other)
  Sender: FDA-Public Use
  Company Number: None

PATIENT
  Age: 60 Year
  Weight: 61 kg

DRUGS (5)
  1. VINCRISTINE [Suspect]
     Active Substance: VINCRISTINE
     Indication: Lymphoma
     Dates: start: 20181121
  2. MABTHERA [Suspect]
     Active Substance: RITUXIMAB
     Indication: Lymphoma
     Dosage: DOSE: 0.5G/50ML
     Dates: start: 20181121
  3. MABTHERA [Suspect]
     Active Substance: RITUXIMAB
     Dosage: DOSE: 0.1G/10ML
     Dates: start: 20181121
  4. DOXORUBICIN HYDROCHLORIDE [Suspect]
     Active Substance: DOXORUBICIN HYDROCHLORIDE
     Indication: Lymphoma
     Dosage: DOSE: 0.05G/25ML
     Dates: start: 20181121
  5. CYCLOPHOSPHAMIDE [Suspect]
     Active Substance: CYCLOPHOSPHAMIDE
     Indication: Lymphoma
     Dates: start: 20181121

REACTIONS (1)
  - Neutropenia [Recovering/Resolving]

NARRATIVE: CASE EVENT DATE: 20181211
